FAERS Safety Report 7987780-3 (Version None)
Quarter: 2011Q4

REPORT INFORMATION
  Report Type: 
  Country: None (occurrence: None)
  Receive Date: 20111216
  Receipt Date: 20110810
  Transmission Date: 20120403
  Serious: Yes (Hospitalization, Other)
  Sender: FDA-Public Use
  Company Number: PHHY2011DE67808

PATIENT
  Sex: Male
  Weight: 82 kg

DRUGS (16)
  1. RASILEZ [Suspect]
     Indication: HYPERTENSION
     Dosage: 150 MG/DAY
     Route: 048
     Dates: start: 20081118, end: 20090319
  2. ACE INHIBITORS [Concomitant]
  3. BETA BLOCKING AGENTS [Concomitant]
     Dates: end: 20110201
  4. ANTIHYPERTENSIVES [Concomitant]
  5. CHOLESTEROL- AND TRIGLYCERIDE REDUCERS [Concomitant]
  6. RAMIPRIL [Concomitant]
     Indication: HYPERTENSION
     Dosage: 5 MG/DAY
     Dates: start: 20050418
  7. ATENOLOL [Suspect]
     Indication: HYPERTENSION
     Dosage: 2 DF, QD
     Route: 048
     Dates: start: 20090714, end: 20110201
  8. ANGIOTENSIN II ANTAGONISTS [Concomitant]
  9. ZANIPRESS [Concomitant]
     Dosage: 20 MG+10 MG (ENALAPRIL + LERCANIDIPIN)
  10. NITRATES [Concomitant]
  11. PLATELET AGGREGATION INHIBITORS [Concomitant]
  12. CALCIUM CHANNEL BLOCKERS [Concomitant]
  13. SIMVASTATIN [Concomitant]
     Indication: HYPERLIPIDAEMIA
     Dosage: 20 MG/DAY
     Dates: start: 20080915
  14. MOXONIDINE [Concomitant]
  15. ANTICOAGULANTS [Concomitant]
  16. LERCANIDIPINE [Concomitant]
     Indication: HYPERTENSION
     Dosage: 1 DF, QD
     Dates: start: 20050418

REACTIONS (17)
  - ANGINA PECTORIS [None]
  - PNEUMONIA [None]
  - HYPERKALAEMIA [None]
  - CREATININE URINE INCREASED [None]
  - ELECTROCARDIOGRAM QT SHORTENED [None]
  - HAEMOGLOBIN DECREASED [None]
  - LEFT VENTRICULAR HYPERTROPHY [None]
  - BLOOD CREATININE INCREASED [None]
  - ATRIOVENTRICULAR BLOCK COMPLETE [None]
  - ATRIAL FIBRILLATION [None]
  - ELECTROCARDIOGRAM QRS COMPLEX SHORTENED [None]
  - BLOOD PRESSURE INCREASED [None]
  - HYPONATRAEMIA [None]
  - BLOOD GLUCOSE INCREASED [None]
  - DIZZINESS [None]
  - C-REACTIVE PROTEIN INCREASED [None]
  - ALBUMIN URINE PRESENT [None]
